FAERS Safety Report 24596154 (Version 2)
Quarter: 2024Q4

REPORT INFORMATION
  Report Type: Spontaneous
  Country: DE (occurrence: DE)
  Receive Date: 20241110
  Receipt Date: 20241118
  Transmission Date: 20250114
  Serious: Yes (Other)
  Sender: AUROBINDO
  Company Number: DE-ROCHE-10000049591

PATIENT
  Age: 16 Year
  Sex: Male
  Weight: 62.7 kg

DRUGS (37)
  1. CARBOPLATIN [Suspect]
     Active Substance: CARBOPLATIN
     Indication: Non-Hodgkin^s lymphoma
     Dosage: 1120 MILLIGRAM
     Route: 042
     Dates: start: 20240802
  2. HYDROCORTISONE [Suspect]
     Active Substance: HYDROCORTISONE
     Indication: Non-Hodgkin^s lymphoma
     Dosage: 10 MILLIGRAM
     Route: 037
     Dates: start: 20240726
  3. OBINUTUZUMAB [Suspect]
     Active Substance: OBINUTUZUMAB
     Indication: Non-Hodgkin^s lymphoma
     Dosage: 100 MILLIGRAM
     Route: 042
     Dates: start: 20240731
  4. METHOTREXATE [Suspect]
     Active Substance: METHOTREXATE
     Indication: Non-Hodgkin^s lymphoma
     Dosage: 15 MILLIGRAM
     Route: 037
     Dates: start: 20240726
  5. IFOSFAMIDE [Suspect]
     Active Substance: IFOSFAMIDE
     Indication: Non-Hodgkin^s lymphoma
     Dosage: 5.3 GRAM(1 TOTAL)
     Route: 042
     Dates: start: 20240802
  6. ETOPOSIDE [Suspect]
     Active Substance: ETOPOSIDE
     Indication: Non-Hodgkin^s lymphoma
     Dosage: 176 MILLIGRAM
     Route: 042
     Dates: start: 20240802
  7. MESNA [Suspect]
     Active Substance: MESNA
     Indication: Non-Hodgkin^s lymphoma
     Dosage: 5500 MILLIGRAM,
     Route: 042
     Dates: start: 20240802
  8. GRANULOCYTE COLONY-STIMULATING FACTOR NOS [Suspect]
     Active Substance: GRANULOCYTE COLONY-STIMULATING FACTOR NOS
     Indication: Non-Hodgkin^s lymphoma
     Dosage: 300 MICROGRAM, 1 TOTAL
     Route: 058
  9. CYTARABINE [Suspect]
     Active Substance: CYTARABINE
     Indication: Non-Hodgkin^s lymphoma
     Dosage: 30 MILLIGRAM, 1 TOTAL (DOSE LAST STUDY DRUG ADMIN PRIOR AE 30 MGSTART DATE OF MOST RECENT DOSE OF ST
     Route: 037
  10. ACETAMINOPHEN [Concomitant]
     Active Substance: ACETAMINOPHEN
     Indication: Headache
     Dosage: 750 MILLIGRAM, AS NECESSARY
     Route: 042
     Dates: start: 20240727
  11. FUROSEMIDE [Concomitant]
     Active Substance: FUROSEMIDE
     Indication: Weight increased
     Dosage: 10 MILLIGRAM, ONCE A DAY
     Route: 042
     Dates: start: 20240803, end: 20240803
  12. RASBURICASE [Concomitant]
     Active Substance: RASBURICASE
     Indication: Tumour lysis syndrome
     Dosage: 3 MILLIGRAM
     Route: 042
     Dates: start: 20240804, end: 20240804
  13. Clemastina [Concomitant]
     Indication: Product used for unknown indication
     Dosage: 1.4 MILLIGRAM, AS NECESSARY
     Route: 042
     Dates: start: 20240731, end: 20240814
  14. CAFFEINE [Concomitant]
     Active Substance: CAFFEINE
     Indication: Headache
     Dosage: 200 MILLIGRAM, AS NECESSARY
     Route: 048
     Dates: start: 20240727, end: 20240905
  15. CHOLECALCIFEROL [Concomitant]
     Active Substance: CHOLECALCIFEROL
     Indication: Product used for unknown indication
     Dosage: 20 INTERNATIONAL UNIT
     Route: 048
     Dates: start: 20240724, end: 20240731
  16. DEXAMETHASONE [Concomitant]
     Active Substance: DEXAMETHASONE
     Indication: Encephalopathy
     Dosage: 10 MILLIGRAM
     Route: 042
     Dates: start: 20240805, end: 20240805
  17. DEXAMETHASONE [Concomitant]
     Active Substance: DEXAMETHASONE
     Indication: Weight increased
     Dosage: 5 MILLIGRAM, ONCE A DAY
     Route: 042
     Dates: start: 20240805, end: 20240805
  18. DEXAMETHASONE [Concomitant]
     Active Substance: DEXAMETHASONE
     Dosage: 5 MILLIGRAM
     Route: 042
     Dates: start: 20240806, end: 20240806
  19. DEXAMETHASONE [Concomitant]
     Active Substance: DEXAMETHASONE
     Dosage: 8 MILLIGRAM, ONCE A DAY
     Route: 042
     Dates: start: 20240802, end: 20240804
  20. PLATELETS [Concomitant]
     Active Substance: HUMAN PLATELET, ALLOGENIC
     Indication: Platelet count decreased
     Dosage: UNK
     Route: 042
     Dates: start: 20240804
  21. HUMAN RED BLOOD CELL [Concomitant]
     Active Substance: HUMAN RED BLOOD CELL
     Indication: Anaemia
     Dosage: UNK
     Route: 042
     Dates: start: 20240805
  22. ENOXAPARIN [Concomitant]
     Active Substance: ENOXAPARIN
     Indication: Thrombosis prophylaxis
     Dosage: UNK(1 OTHER)
     Route: 058
     Dates: start: 20240806, end: 20240808
  23. ENOXAPARIN [Concomitant]
     Active Substance: ENOXAPARIN
     Dosage: UNK(1 OTHER)
     Route: 058
     Dates: start: 20240730, end: 20240803
  24. MELATONIN [Concomitant]
     Active Substance: MELATONIN
     Indication: Product used for unknown indication
     Dosage: 2 MILLIGRAM, ONCE A DAY
     Route: 048
     Dates: start: 20240727, end: 20240801
  25. MELATONIN [Concomitant]
     Active Substance: MELATONIN
     Dosage: 5 MILLIGRAM, ONCE A DAY
     Route: 048
     Dates: start: 20240802, end: 20240803
  26. MELATONIN [Concomitant]
     Active Substance: MELATONIN
     Dosage: 5 MILLIGRAM, ONCE A DAY
     Route: 048
     Dates: start: 20240806, end: 20240913
  27. METHYLPREDNISOLONE [Concomitant]
     Active Substance: METHYLPREDNISOLONE
     Indication: Product used for unknown indication
     Dosage: 60 MILLIGRAM, AS NECESSARY
     Route: 042
     Dates: start: 20240731, end: 20240814
  28. ONDANSETRON [Concomitant]
     Active Substance: ONDANSETRON
     Indication: Product used for unknown indication
     Dosage: 8 MILLIGRAM
     Route: 042
     Dates: start: 20240802, end: 20240802
  29. ONDANSETRON [Concomitant]
     Active Substance: ONDANSETRON
     Dosage: 8 MILLIGRAM
     Route: 042
     Dates: start: 20240803, end: 20240803
  30. ONDANSETRON [Concomitant]
     Active Substance: ONDANSETRON
     Dosage: 8 MILLIGRAM
     Route: 042
     Dates: start: 20240804, end: 20240804
  31. ONDANSETRON [Concomitant]
     Active Substance: ONDANSETRON
     Dosage: 8 MILLIGRAM
     Route: 042
     Dates: start: 20240805, end: 20240805
  32. ONDANSETRON [Concomitant]
     Active Substance: ONDANSETRON
     Dosage: 8 MILLIGRAM
     Route: 042
     Dates: start: 20240806, end: 20240811
  33. PANTOPRAZOLE SODIUM [Concomitant]
     Active Substance: PANTOPRAZOLE SODIUM
     Indication: Product used for unknown indication
     Dosage: 40 MILLIGRAM
     Route: 048
     Dates: start: 20240728, end: 20240907
  34. POSACONAZOLE [Concomitant]
     Active Substance: POSACONAZOLE
     Indication: Product used for unknown indication
     Dosage: 300 MILLIGRAM, ONCE A DAY
     Route: 048
     Dates: start: 20240701
  35. SULFAMETHOXAZOLE\TRIMETHOPRIM [Concomitant]
     Active Substance: SULFAMETHOXAZOLE\TRIMETHOPRIM
     Indication: Product used for unknown indication
     Dosage: 80 MILLIGRAM, ONCE A DAY
     Route: 048
     Dates: end: 20240723
  36. SULFAMETHOXAZOLE\TRIMETHOPRIM [Concomitant]
     Active Substance: SULFAMETHOXAZOLE\TRIMETHOPRIM
     Dosage: 160 MILLIGRAM, ONCE A DAY
     Route: 048
     Dates: start: 20240723, end: 20240723
  37. SULFAMETHOXAZOLE\TRIMETHOPRIM [Concomitant]
     Active Substance: SULFAMETHOXAZOLE\TRIMETHOPRIM
     Dosage: 320 MILLIGRAM
     Route: 048
     Dates: start: 20240726, end: 20240913

REACTIONS (2)
  - Encephalopathy [Recovered/Resolved]
  - Tumour lysis syndrome [Recovered/Resolved]

NARRATIVE: CASE EVENT DATE: 20240803
